FAERS Safety Report 18267257 (Version 1)
Quarter: 2020Q3

REPORT INFORMATION
  Report Type: Spontaneous
  Country: US (occurrence: US)
  Receive Date: 20200914
  Receipt Date: 20200914
  Transmission Date: 20201103
  Serious: Yes (Life-Threatening, Hospitalization, Disabling, Other)
  Sender: FDA-Public Use
  Company Number: None

PATIENT
  Age: 47 Year
  Sex: Female
  Weight: 72.58 kg

DRUGS (2)
  1. MEDITRONIC INTRATHECAL PUMP [Suspect]
     Active Substance: DEVICE
     Dates: start: 20180401
  2. MORPHINE [Suspect]
     Active Substance: MORPHINE

REACTIONS (6)
  - Device failure [None]
  - Cerebrospinal fluid leakage [None]
  - Muscle graft [None]
  - Fear [None]
  - Post procedural complication [None]
  - Pain [None]

NARRATIVE: CASE EVENT DATE: 20180407
